FAERS Safety Report 9046953 (Version 1)
Quarter: 2013Q1

REPORT INFORMATION
  Report Type: Spontaneous
  Country: US (occurrence: None)
  Receive Date: 20130129
  Receipt Date: 20130129
  Transmission Date: 20140127
  Serious: Yes (Other)
  Sender: FDA-Public Use
  Company Number: None

PATIENT
  Age: 55 Year
  Sex: Male
  Weight: 86.18 kg

DRUGS (1)
  1. ANATABLOC [Suspect]
     Dates: start: 20120801, end: 20121010

REACTIONS (4)
  - Dizziness [None]
  - Disorientation [None]
  - Dysstasia [None]
  - Impaired driving ability [None]
